FAERS Safety Report 19361787 (Version 2)
Quarter: 2021Q3

REPORT INFORMATION
  Report Type: Report from Study
  Country: JP (occurrence: JP)
  Receive Date: 20210602
  Receipt Date: 20210713
  Transmission Date: 20211014
  Serious: Yes (Life-Threatening, Other)
  Sender: FDA-Public Use
  Company Number: JP-ASTELLAS-2012JP009929

PATIENT
  Age: 37 Year
  Sex: Female
  Weight: 54 kg

DRUGS (46)
  1. CINAL [Concomitant]
     Indication: PRODUCT USED FOR UNKNOWN INDICATION
     Route: 048
     Dates: end: 20140809
  2. BONALON [Concomitant]
     Active Substance: ALENDRONATE SODIUM
     Route: 048
     Dates: end: 20130520
  3. ROHYPNOL [Concomitant]
     Active Substance: FLUNITRAZEPAM
     Indication: PRODUCT USED FOR UNKNOWN INDICATION
     Route: 048
     Dates: end: 20101112
  4. REMINARON [Concomitant]
     Active Substance: GABEXATE MESYLATE
     Indication: PANCREATITIS
     Dosage: UNK UNK, UNKNOWN FREQ.
     Route: 065
  5. BONALON [Concomitant]
     Active Substance: ALENDRONATE SODIUM
     Indication: PROPHYLAXIS
     Route: 048
  6. BAKTAR [Concomitant]
     Active Substance: SULFAMETHOXAZOLE\TRIMETHOPRIM
     Route: 048
     Dates: start: 20130624, end: 20140810
  7. SILECE [Concomitant]
     Active Substance: FLUNITRAZEPAM
     Indication: PROPHYLAXIS
     Route: 048
     Dates: start: 20110108, end: 20130520
  8. FOIPAN [Concomitant]
     Active Substance: CAMOSTAT MESYLATE
     Indication: PROPHYLAXIS
     Route: 048
     Dates: start: 20140511
  9. TACROLIMUS. [Suspect]
     Active Substance: TACROLIMUS
     Route: 048
     Dates: start: 20130628
  10. PREDNISOLONE. [Concomitant]
     Active Substance: PREDNISOLONE
     Route: 048
     Dates: start: 20070723, end: 20070831
  11. PREDNISOLONE. [Concomitant]
     Active Substance: PREDNISOLONE
     Dosage: 20/10 MG, EVERY OTHER DAY
     Route: 048
     Dates: start: 20090510, end: 20111112
  12. FERROMIA [Concomitant]
     Active Substance: SODIUM FERROUS CITRATE
     Indication: PRODUCT USED FOR UNKNOWN INDICATION
     Route: 048
     Dates: end: 20070810
  13. CINAL [Concomitant]
     Route: 048
     Dates: start: 20140810
  14. LASIX P [Concomitant]
     Active Substance: FUROSEMIDE
     Indication: PROPHYLAXIS
     Route: 048
     Dates: end: 20070831
  15. LASIX P [Concomitant]
     Active Substance: FUROSEMIDE
     Route: 048
     Dates: start: 20080302, end: 20130520
  16. PREDNISOLONE. [Concomitant]
     Active Substance: PREDNISOLONE
     Route: 048
     Dates: start: 20070901, end: 20071012
  17. PREDNISOLONE. [Concomitant]
     Active Substance: PREDNISOLONE
     Dosage: 15/10 MG, EVERY OTHER DAY
     Route: 048
     Dates: start: 20111113, end: 20121110
  18. PREDNISOLONE. [Concomitant]
     Active Substance: PREDNISOLONE
     Route: 048
     Dates: start: 20130613, end: 20130627
  19. EBASTEL [Concomitant]
     Active Substance: EBASTINE
     Indication: PRODUCT USED FOR UNKNOWN INDICATION
     Route: 048
     Dates: end: 20070831
  20. TACROLIMUS. [Suspect]
     Active Substance: TACROLIMUS
     Indication: LUPUS NEPHRITIS
     Route: 048
     Dates: start: 20070712, end: 20130627
  21. PREDNISOLONE. [Concomitant]
     Active Substance: PREDNISOLONE
     Route: 048
     Dates: start: 20070901, end: 20071012
  22. PREDNISOLONE. [Concomitant]
     Active Substance: PREDNISOLONE
     Dosage: 25/10 MG, EVERY OTHER DAY
     Route: 048
     Dates: start: 20080113, end: 20090509
  23. PREDNISOLONE. [Concomitant]
     Active Substance: PREDNISOLONE
     Route: 048
     Dates: start: 20130528, end: 20130612
  24. PREDNISOLONE. [Concomitant]
     Active Substance: PREDNISOLONE
     Route: 048
     Dates: start: 20130915, end: 20131102
  25. ENDOXAN [Concomitant]
     Active Substance: CYCLOPHOSPHAMIDE
     Indication: LUPUS NEPHRITIS
     Route: 065
     Dates: start: 20070723, end: 20070723
  26. TAKEPRON [Concomitant]
     Active Substance: LANSOPRAZOLE
     Indication: PROPHYLAXIS
     Route: 048
     Dates: end: 20070831
  27. FOIPAN [Concomitant]
     Active Substance: CAMOSTAT MESYLATE
     Indication: PRODUCT USED FOR UNKNOWN INDICATION
     Route: 048
     Dates: start: 201305, end: 20140510
  28. CLARITH [Concomitant]
     Active Substance: CLARITHROMYCIN
     Indication: NASOPHARYNGITIS
     Route: 065
  29. SULPERAZON [Concomitant]
     Active Substance: CEFOPERAZONE SODIUM\SULBACTAM SODIUM
     Indication: PANCREATITIS
     Dosage: UNK UNK, UNKNOWN FREQ.
     Route: 065
  30. BONOTEO [Concomitant]
     Active Substance: MINODRONIC ACID
     Indication: PROPHYLAXIS
     Dosage: 50 MG, UNKNOWN FREQ.
     Route: 048
     Dates: start: 20200123
  31. PREDNISOLONE. [Concomitant]
     Active Substance: PREDNISOLONE
     Route: 048
     Dates: start: 20130628, end: 20130914
  32. PREDNISOLONE. [Concomitant]
     Active Substance: PREDNISOLONE
     Route: 048
     Dates: start: 20141012, end: 20160827
  33. BAKTAR [Concomitant]
     Active Substance: SULFAMETHOXAZOLE\TRIMETHOPRIM
     Indication: PROPHYLAXIS
     Route: 048
     Dates: end: 20080405
  34. PREDNISOLONE. [Concomitant]
     Active Substance: PREDNISOLONE
     Indication: LUPUS NEPHRITIS
     Route: 048
     Dates: start: 20070714, end: 20070722
  35. PREDNISOLONE. [Concomitant]
     Active Substance: PREDNISOLONE
     Dosage: 30/10 MG, EVERY OTHER DAY
     Route: 048
     Dates: start: 20071013, end: 20080112
  36. PREDNISOLONE. [Concomitant]
     Active Substance: PREDNISOLONE
     Route: 048
     Dates: start: 20121111, end: 20130527
  37. BAYASPIRIN [Concomitant]
     Active Substance: ASPIRIN
     Indication: PROPHYLAXIS
     Route: 048
  38. LASIX P [Concomitant]
     Active Substance: FUROSEMIDE
     Route: 048
     Dates: start: 20070901, end: 20080301
  39. SILECE [Concomitant]
     Active Substance: FLUNITRAZEPAM
     Indication: PRODUCT USED FOR UNKNOWN INDICATION
     Route: 048
     Dates: start: 20101113, end: 20110107
  40. SILECE [Concomitant]
     Active Substance: FLUNITRAZEPAM
     Route: 048
     Dates: start: 20130521
  41. GASTER [Concomitant]
     Active Substance: FAMOTIDINE
     Indication: PROPHYLAXIS
     Route: 048
     Dates: start: 20070901, end: 20210403
  42. PREDNISOLONE. [Concomitant]
     Active Substance: PREDNISOLONE
     Route: 048
     Dates: start: 20131103, end: 20141011
  43. PREDNISOLONE. [Concomitant]
     Active Substance: PREDNISOLONE
     Route: 048
     Dates: start: 20160828
  44. FUNGIZONE [Concomitant]
     Active Substance: AMPHOTERICIN B
     Indication: PROPHYLAXIS
     Route: 048
     Dates: end: 20070810
  45. NIZORAL [Concomitant]
     Active Substance: KETOCONAZOLE
     Indication: SEBORRHOEIC DERMATITIS
     Dosage: UNK UNK, UNKNOWN FREQ.
     Route: 061
     Dates: start: 20100109
  46. DASEN [Concomitant]
     Active Substance: SERRAPEPTASE
     Indication: NASOPHARYNGITIS
     Route: 065

REACTIONS (5)
  - Pancreatitis [Recovering/Resolving]
  - Hydronephrosis [Not Recovered/Not Resolved]
  - Seborrhoeic dermatitis [Recovering/Resolving]
  - Nasopharyngitis [Recovered/Resolved]
  - Hypertension [Recovering/Resolving]

NARRATIVE: CASE EVENT DATE: 20091010
